FAERS Safety Report 16180228 (Version 1)
Quarter: 2019Q2

REPORT INFORMATION
  Report Type: Spontaneous
  Country: US (occurrence: US)
  Receive Date: 20190410
  Receipt Date: 20190410
  Transmission Date: 20190711
  Serious: Yes (Hospitalization, Other)
  Sender: FDA-Public Use
  Company Number: US-AMNEAL PHARMACEUTICALS-2019AMN00123

PATIENT
  Age: 1 Year
  Sex: Female

DRUGS (2)
  1. VIGABATRIN. [Suspect]
     Active Substance: VIGABATRIN
     Indication: EPILEPSY
     Dosage: WEEK 1; 2X/DAY, TITRATION DOSING, EACH PACKET DISSOLVE IN 10 ML WATER, GIVE 4 ML (200 MG) BY MOUTH
     Route: 048
  2. VIGABATRIN. [Suspect]
     Active Substance: VIGABATRIN
     Dosage: WEEK 2: 7.5 ML (375 MG) BY MOUTH TWICE DAILY, DISCARD ANY UNUSED PORTION
     Route: 048

REACTIONS (1)
  - Condition aggravated [Unknown]

NARRATIVE: CASE EVENT DATE: 201901
